FAERS Safety Report 19469153 (Version 1)
Quarter: 2021Q2

REPORT INFORMATION
  Report Type: Spontaneous
  Country: JP (occurrence: JP)
  Receive Date: 20210628
  Receipt Date: 20210628
  Transmission Date: 20210717
  Serious: Yes (Other)
  Sender: FDA-Public Use
  Company Number: JP-MALLINCKRODT PHARMACEUTICALS-T202102840

PATIENT
  Age: 99 Year

DRUGS (2)
  1. MAGMITT [Suspect]
     Active Substance: MAGNESIUM OXIDE
     Indication: PRODUCT USED FOR UNKNOWN INDICATION
     Dosage: UNK, BID
     Route: 048
  2. AMITIZA [Suspect]
     Active Substance: LUBIPROSTONE
     Indication: PRODUCT USED FOR UNKNOWN INDICATION
     Dosage: 24 MICROGRAM, BID
     Route: 048

REACTIONS (3)
  - Diarrhoea [Not Recovered/Not Resolved]
  - Shock [Unknown]
  - Constipation [Unknown]
